FAERS Safety Report 9167900 (Version 1)
Quarter: 2013Q1

REPORT INFORMATION
  Report Type: Spontaneous
  Country: DE (occurrence: None)
  Receive Date: 20130304
  Receipt Date: 20130304
  Transmission Date: 20140127
  Serious: Yes (Hospitalization)
  Sender: FDA-Public Use
  Company Number: 0220200

PATIENT
  Age: 3 Year
  Sex: Male

DRUGS (1)
  1. TACHOSIL [Suspect]
     Dates: start: 20110623

REACTIONS (4)
  - Blood lactate dehydrogenase increased [None]
  - C-reactive protein increased [None]
  - Disseminated intravascular coagulation [None]
  - Pyrexia [None]
